FAERS Safety Report 4652432-4 (Version None)
Quarter: 2005Q2

REPORT INFORMATION
  Report Type: 
  Country: None (occurrence: None)
  Receive Date: 20050504
  Receipt Date: 20050422
  Transmission Date: 20051028
  Serious: Yes (Other)
  Sender: FDA-Public Use
  Company Number: US-GLAXOSMITHKLINE-A0555293A

PATIENT
  Age: 68 Year
  Sex: Female

DRUGS (3)
  1. NICORETTE (MINT) [Suspect]
     Route: 002
  2. PROVERA [Suspect]
  3. PREMARIN [Suspect]

REACTIONS (3)
  - DRUG ABUSER [None]
  - MOUTH ULCERATION [None]
  - VAGINAL HAEMORRHAGE [None]
